FAERS Safety Report 22147785 (Version 1)
Quarter: 2023Q1

REPORT INFORMATION
  Report Type: Spontaneous
  Country: GB (occurrence: GB)
  Receive Date: 20230328
  Receipt Date: 20230328
  Transmission Date: 20230418
  Serious: Yes (Hospitalization, Other)
  Sender: FDA-Public Use
  Company Number: GB-MHRA-MED-202303221303395020-WGYMK

PATIENT
  Age: 89 Year
  Sex: Female

DRUGS (1)
  1. BACLOFEN [Suspect]
     Active Substance: BACLOFEN
     Indication: Pain
     Dosage: 5 MILLIGRAM, TID (5MG THREE TIMES A DAY)
     Route: 065
     Dates: start: 20230214, end: 20230214

REACTIONS (2)
  - Unresponsive to stimuli [Recovered/Resolved]
  - Confusional state [Recovered/Resolved]

NARRATIVE: CASE EVENT DATE: 20230215
